FAERS Safety Report 6612202-4 (Version None)
Quarter: 2010Q1

REPORT INFORMATION
  Report Type: 
  Country: None (occurrence: None)
  Receive Date: 20100302
  Receipt Date: 20100302
  Transmission Date: 20100710
  Serious: Yes (Hospitalization)
  Sender: FDA-Public Use
  Company Number: None

PATIENT
  Age: 24 Year
  Sex: Female
  Weight: 90.7194 kg

DRUGS (1)
  1. TORADOL [Suspect]
     Indication: MIGRAINE
     Dosage: 60 MG/SHOT ONCE AT CLINIC IM
     Route: 030
     Dates: start: 20100225, end: 20100225

REACTIONS (5)
  - ABDOMINAL PAIN UPPER [None]
  - DIARRHOEA [None]
  - HYPOAESTHESIA [None]
  - INJECTION SITE PAIN [None]
  - PARAESTHESIA [None]
